FAERS Safety Report 5092339-4 (Version None)
Quarter: 2006Q3

REPORT INFORMATION
  Report Type: 
  Country: None (occurrence: None)
  Receive Date: 20060825
  Receipt Date: 20060814
  Transmission Date: 20061208
  Serious: Yes (Hospitalization)
  Sender: FDA-Public Use
  Company Number: US200608003235

PATIENT
  Age: 29 Year
  Sex: Female
  Weight: 92.1 kg

DRUGS (1)
  1. ZYPREXA [Suspect]

REACTIONS (3)
  - DIABETES MELLITUS [None]
  - GLYCOSURIA [None]
  - THROMBOSIS [None]
